FAERS Safety Report 14528729 (Version 2)
Quarter: 2018Q1

REPORT INFORMATION
  Report Type: Spontaneous
  Country: BR (occurrence: BR)
  Receive Date: 20180214
  Receipt Date: 20180219
  Transmission Date: 20180509
  Serious: No
  Sender: FDA-Public Use
  Company Number: BR-AMGEN-BRASP2017138704

PATIENT
  Age: 51 Year
  Sex: Female

DRUGS (4)
  1. SERTRALINE [Concomitant]
     Active Substance: SERTRALINE HYDROCHLORIDE
     Indication: DEPRESSION
     Dosage: UNK
     Dates: start: 2013
  2. BROMAZEPAM [Concomitant]
     Active Substance: BROMAZEPAM
     Indication: NERVE INJURY
     Dosage: UNK
     Dates: start: 1998
  3. AMITRIPTYLINE [Concomitant]
     Active Substance: AMITRIPTYLINE
     Indication: DEPRESSION
     Dosage: UNK
     Dates: start: 2013
  4. ENBREL [Suspect]
     Active Substance: ETANERCEPT
     Indication: RHEUMATOID ARTHRITIS
     Dosage: 50 MG, WEEKLY
     Route: 065
     Dates: start: 2014

REACTIONS (8)
  - Gait disturbance [Not Recovered/Not Resolved]
  - Blood cholesterol increased [Recovered/Resolved]
  - Fibromyalgia [Not Recovered/Not Resolved]
  - Wrong technique in product usage process [Recovered/Resolved]
  - Joint swelling [Not Recovered/Not Resolved]
  - Condition aggravated [Not Recovered/Not Resolved]
  - Injection site haematoma [Recovered/Resolved]
  - Arthralgia [Not Recovered/Not Resolved]

NARRATIVE: CASE EVENT DATE: 2014
